FAERS Safety Report 19706263 (Version 1)
Quarter: 2021Q3

REPORT INFORMATION
  Report Type: Spontaneous
  Country: IN (occurrence: IN)
  Receive Date: 20210817
  Receipt Date: 20210817
  Transmission Date: 20211014
  Serious: Yes (Other)
  Sender: FDA-Public Use
  Company Number: IN-SUN PHARMACEUTICAL INDUSTRIES LTD-2021R1-307407

PATIENT
  Age: 30 Year
  Sex: Male

DRUGS (2)
  1. LEVOCETRIZINE [Suspect]
     Active Substance: LEVOCETIRIZINE
     Indication: NEURODERMATITIS
     Dosage: 5 MILLIGRAM, BID
     Route: 065
  2. CLOBETASOL PROPIONATE. [Concomitant]
     Active Substance: CLOBETASOL PROPIONATE
     Indication: NEURODERMATITIS
     Dosage: UNK
     Route: 061

REACTIONS (1)
  - Symmetrical drug-related intertriginous and flexural exanthema [Recovering/Resolving]
